FAERS Safety Report 18047060 (Version 2)
Quarter: 2020Q3

REPORT INFORMATION
  Report Type: Other
  Country: JP (occurrence: JP)
  Receive Date: 20200721
  Receipt Date: 20200814
  Transmission Date: 20201105
  Serious: Yes (Death)
  Sender: FDA-Public Use
  Company Number: JP-ROCHE-2644071

PATIENT
  Age: 51 Year
  Sex: Male
  Weight: 110 kg

DRUGS (2)
  1. EMICIZUMAB. [Suspect]
     Active Substance: EMICIZUMAB
     Indication: HAEMOPHILIA A WITHOUT INHIBITORS
     Route: 058
     Dates: start: 20190610
  2. ADYNOVATE [Concomitant]
     Active Substance: ANTIHEMOPHILIC FACTOR, HUMAN RECOMBINANT
     Indication: HAEMORRHAGE PROPHYLAXIS
     Dosage: DOSE INTERVAL UNCERTAINTY
     Route: 065
     Dates: start: 20190617

REACTIONS (1)
  - Cerebral haemorrhage [Fatal]
